FAERS Safety Report 15524337 (Version 1)
Quarter: 2018Q4

REPORT INFORMATION
  Report Type: Spontaneous
  Country: FR (occurrence: FR)
  Receive Date: 20181018
  Receipt Date: 20181018
  Transmission Date: 20190205
  Serious: Yes (Hospitalization)
  Sender: FDA-Public Use
  Company Number: FR-PURDUE-GBR-2018-0060433

PATIENT
  Age: 77 Year
  Sex: Female
  Weight: 103 kg

DRUGS (12)
  1. LASILIX [Concomitant]
     Active Substance: FUROSEMIDE
  2. IMPORTAL [Concomitant]
     Active Substance: LACTITOL
  3. TRIATEC (RAMIPRIL) [Concomitant]
     Active Substance: RAMIPRIL
  4. DUROGESIC [Suspect]
     Active Substance: FENTANYL
     Indication: PAIN
     Dosage: 5 DF, DAILY
     Route: 062
     Dates: end: 201501
  5. SIMVASTATINE [Concomitant]
     Active Substance: SIMVASTATIN
  6. AMLOR [Concomitant]
     Active Substance: AMLODIPINE BESYLATE
  7. ZYLORIC [Concomitant]
     Active Substance: ALLOPURINOL
  8. OXYNORM [Suspect]
     Active Substance: OXYCODONE HYDROCHLORIDE
     Indication: PAIN
     Dosage: 5 MG, PRN (STRENGTH 5MG / AS NECESSARY)
     Route: 048
     Dates: end: 201501
  9. ZOLPIDEM [Suspect]
     Active Substance: ZOLPIDEM\ZOLPIDEM TARTRATE
     Indication: INSOMNIA
     Dosage: 10 MG, DAILY
     Route: 048
  10. SERESTA [Suspect]
     Active Substance: OXAZEPAM
     Indication: ANXIETY
     Dosage: 10 MG, DAILY (STRENGTH 10 MG)
     Route: 048
  11. DOLIPRANE [Concomitant]
     Active Substance: ACETAMINOPHEN
  12. PREVISCAN (FLUINDIONE) [Concomitant]
     Active Substance: FLUINDIONE

REACTIONS (4)
  - Miosis [Recovered/Resolved]
  - Fall [Recovered/Resolved]
  - Confusional state [Recovered/Resolved]
  - Bradycardia [Recovered/Resolved]

NARRATIVE: CASE EVENT DATE: 201501
